FAERS Safety Report 7375919-2 (Version None)
Quarter: 2011Q1

REPORT INFORMATION
  Report Type: 
  Country: None (occurrence: None)
  Receive Date: 20110325
  Receipt Date: 20110317
  Transmission Date: 20110831
  Serious: Yes (Other)
  Sender: FDA-Public Use
  Company Number: B0708201A

PATIENT
  Age: 55 Year
  Sex: Male

DRUGS (3)
  1. GLIBENCLAMIDE [Concomitant]
     Indication: TYPE 2 DIABETES MELLITUS
     Route: 065
  2. METFORMIN HCL [Concomitant]
     Indication: TYPE 2 DIABETES MELLITUS
     Route: 065
  3. ROSIGLITAZONE [Suspect]
     Indication: TYPE 2 DIABETES MELLITUS
     Dosage: 4MG PER DAY
     Route: 065

REACTIONS (9)
  - EYE DISORDER [None]
  - EYELID RETRACTION [None]
  - EXTRAOCULAR MUSCLE DISORDER [None]
  - KERATITIS [None]
  - EYELID PTOSIS [None]
  - EXOPHTHALMOS [None]
  - FOREIGN BODY SENSATION IN EYES [None]
  - VISUAL ACUITY REDUCED [None]
  - EYE MOVEMENT DISORDER [None]
